FAERS Safety Report 8403711-6 (Version None)
Quarter: 2012Q2

REPORT INFORMATION
  Report Type: 
  Country: None (occurrence: None)
  Receive Date: 20120601
  Receipt Date: 20110809
  Transmission Date: 20120825
  Serious: No
  Sender: FDA-Public Use
  Company Number: US-NOVEN-11US002971

PATIENT
  Sex: Male
  Weight: 28.118 kg

DRUGS (6)
  1. DAYTRANA [Suspect]
     Dosage: 15 MG, QD
     Dates: start: 20110501, end: 20110501
  2. DAYTRANA [Suspect]
     Indication: ATTENTION DEFICIT/HYPERACTIVITY DISORDER
     Dosage: 20 MG, QD
     Route: 062
     Dates: start: 20110601
  3. PROZAC [Concomitant]
     Indication: ANXIETY
     Dosage: 5 MG, QD
     Route: 048
     Dates: start: 20101201
  4. DAYTRANA [Suspect]
     Dosage: 20 MG, QD
     Route: 062
     Dates: start: 20110601
  5. LOMOTIL [Concomitant]
     Indication: COLON OPERATION
     Dosage: 2.5 MG, 1 TSP QD
     Route: 048
  6. DAYTRANA [Suspect]
     Dosage: 10 MG, QD
     Dates: start: 20110401, end: 20110401

REACTIONS (2)
  - WRONG TECHNIQUE IN DRUG USAGE PROCESS [None]
  - NO ADVERSE EVENT [None]
